FAERS Safety Report 25203301 (Version 1)
Quarter: 2025Q2

REPORT INFORMATION
  Report Type: Spontaneous
  Country: US (occurrence: None)
  Receive Date: 20250415
  Receipt Date: 20250415
  Transmission Date: 20250716
  Serious: Yes (Death, Life-Threatening, Hospitalization)
  Sender: FDA-CTU
  Company Number: None

PATIENT
  Age: 59 Year
  Sex: Female

DRUGS (1)
  1. CEFTRIAXONE [Suspect]
     Active Substance: CEFTRIAXONE
     Route: 040
     Dates: start: 20250323, end: 20250323

REACTIONS (8)
  - Multiple organ dysfunction syndrome [None]
  - Cardiac arrest [None]
  - Brain injury [None]
  - Lactic acidosis [None]
  - Intestinal ischaemia [None]
  - Disseminated intravascular coagulation [None]
  - Blood gases [None]
  - Acute kidney injury [None]

NARRATIVE: CASE EVENT DATE: 20250323
